FAERS Safety Report 6419428-3 (Version None)
Quarter: 2009Q4

REPORT INFORMATION
  Report Type: 
  Country: None (occurrence: None)
  Receive Date: 20091029
  Receipt Date: 20091020
  Transmission Date: 20100525
  Serious: Yes (Other)
  Sender: FDA-Public Use
  Company Number: US-WYE-H11062809

PATIENT
  Sex: Female
  Weight: 52.21 kg

DRUGS (5)
  1. PRISTIQ [Suspect]
     Indication: DEPRESSION
     Route: 048
     Dates: start: 20080601
  2. TEMAZEPAM [Concomitant]
     Indication: SLEEP DISORDER
     Dosage: 1 CAP QHS
     Route: 048
     Dates: start: 20040101
  3. ORTHO TRI-CYCLEN [Concomitant]
     Indication: CONTRACEPTION
     Route: 048
     Dates: start: 20020101, end: 20090101
  4. NIFEDIPINE [Concomitant]
     Indication: RAYNAUD'S PHENOMENON
     Route: 048
     Dates: start: 20040101
  5. ACETYLSALICYLIC ACID [Concomitant]
     Indication: RAYNAUD'S PHENOMENON
     Dosage: 325 MG
     Route: 048
     Dates: start: 20040101

REACTIONS (1)
  - CEREBROVASCULAR ACCIDENT [None]
